FAERS Safety Report 15394791 (Version 1)
Quarter: 2018Q3

REPORT INFORMATION
  Report Type: Report from Study
  Country: US (occurrence: US)
  Receive Date: 20180918
  Receipt Date: 20180918
  Transmission Date: 20181010
  Serious: Yes (Other)
  Sender: FDA-Public Use
  Company Number: US-UCBSA-2018041165

PATIENT
  Age: 24 Year
  Sex: Female

DRUGS (1)
  1. LACOSAMIDE. [Suspect]
     Active Substance: LACOSAMIDE
     Indication: PRODUCT USED FOR UNKNOWN INDICATION
     Dosage: 300 MG/DAY

REACTIONS (6)
  - Generalised tonic-clonic seizure [Unknown]
  - Seizure [Unknown]
  - Confusional state [Unknown]
  - Injury [Unknown]
  - Headache [Unknown]
  - Fall [Unknown]
